FAERS Safety Report 15525478 (Version 1)
Quarter: 2018Q4

REPORT INFORMATION
  Report Type: Spontaneous
  Country: MY (occurrence: MY)
  Receive Date: 20181019
  Receipt Date: 20181019
  Transmission Date: 20190205
  Serious: Yes (Death, Other)
  Sender: FDA-Public Use
  Company Number: MY-PFIZER INC-2018423436

PATIENT
  Age: 48 Year
  Sex: Male

DRUGS (8)
  1. CYTARABINE. [Concomitant]
     Active Substance: CYTARABINE
     Indication: CHRONIC MYELOID LEUKAEMIA
     Dosage: UNK (STANDARD INDUCTION CHEMOTHERAPY)
     Dates: start: 2015
  2. IDARUBICIN HCL [Suspect]
     Active Substance: IDARUBICIN HYDROCHLORIDE
     Indication: CHRONIC MYELOID LEUKAEMIA
     Dosage: UNK (STANDARD INDUCTION CHEMOTHERAPY)
     Dates: start: 2015
  3. CYTARABINE. [Concomitant]
     Active Substance: CYTARABINE
     Indication: LEUKAEMIC INFILTRATION EXTRAMEDULLARY
  4. CYTARABINE. [Concomitant]
     Active Substance: CYTARABINE
     Indication: MALIGNANT ASCITES
  5. IDARUBICIN HCL [Suspect]
     Active Substance: IDARUBICIN HYDROCHLORIDE
     Indication: MALIGNANT ASCITES
     Dosage: UNK (DOSE WAS MODIFIED)
  6. MEROPENEM. [Concomitant]
     Active Substance: MEROPENEM
     Indication: PYREXIA
     Dosage: UNK
     Route: 042
     Dates: start: 201501
  7. IDARUBICIN HCL [Suspect]
     Active Substance: IDARUBICIN HYDROCHLORIDE
     Indication: LEUKAEMIC INFILTRATION EXTRAMEDULLARY
  8. CEFTRIAXONE. [Concomitant]
     Active Substance: CEFTRIAXONE
     Indication: PERITONITIS BACTERIAL
     Dosage: UNK
     Route: 042
     Dates: start: 2015

REACTIONS (1)
  - Hepatotoxicity [Unknown]

NARRATIVE: CASE EVENT DATE: 2015
